FAERS Safety Report 4530708-9 (Version None)
Quarter: 2004Q4

REPORT INFORMATION
  Report Type: 
  Country: None (occurrence: None)
  Receive Date: 20041217
  Receipt Date: 20041112
  Transmission Date: 20050328
  Serious: Yes (Other)
  Sender: FDA-Public Use
  Company Number: JP-GLAXOSMITHKLINE-B0357147A

PATIENT
  Age: 66 Year
  Sex: Male
  Weight: 45 kg

DRUGS (11)
  1. PAXIL [Suspect]
     Route: 048
     Dates: start: 20041026, end: 20041105
  2. ULCERLMIN [Concomitant]
     Indication: EATING DISORDER
     Dosage: 3G PER DAY
     Route: 048
  3. SODIUM CHLORIDE [Concomitant]
     Indication: EATING DISORDER
     Dosage: 6G PER DAY
     Route: 065
  4. ASPIRIN [Concomitant]
     Indication: CEREBRAL INFARCTION
     Dosage: 100MG PER DAY
     Route: 048
  5. HARNAL [Concomitant]
     Indication: BENIGN PROSTATIC HYPERPLASIA
     Dosage: 1U PER DAY
     Route: 048
  6. UBRETID [Concomitant]
     Indication: DYSURIA
     Dosage: 1U PER DAY
     Route: 048
  7. TICLOPIDINE HCL [Concomitant]
     Indication: CEREBRAL INFARCTION
     Dosage: 200MG PER DAY
     Route: 048
  8. LENDORMIN [Concomitant]
     Indication: INSOMNIA
     Dosage: 1U PER DAY
     Route: 048
  9. LUDIOMIL [Concomitant]
     Indication: DEPRESSION
     Dosage: 1U PER DAY
     Route: 048
  10. OPALMON [Concomitant]
     Indication: PERIPHERAL VASCULAR DISORDER
     Dosage: 3U PER DAY
     Route: 048
  11. RISPERDAL [Concomitant]
     Indication: DEPRESSION
     Dosage: 1MG PER DAY
     Route: 048
     Dates: end: 20041105

REACTIONS (6)
  - ABDOMINAL DISTENSION [None]
  - ABDOMINAL PAIN [None]
  - DIARRHOEA [None]
  - GASTRIC HAEMORRHAGE [None]
  - NAUSEA [None]
  - PYREXIA [None]
